FAERS Safety Report 11129206 (Version 2)
Quarter: 2015Q2

REPORT INFORMATION
  Report Type: Spontaneous
  Country: IR (occurrence: IR)
  Receive Date: 20150521
  Receipt Date: 20150603
  Transmission Date: 20150821
  Serious: Yes (Hospitalization)
  Sender: FDA-Public Use
  Company Number: IR-NOVOPROD-448356

PATIENT
  Age: 70 Year
  Sex: Male
  Weight: 75 kg

DRUGS (13)
  1. ATORVASTATIN [Concomitant]
     Active Substance: ATORVASTATIN
     Dosage: 1 TAB, QD
     Route: 065
  2. SALBUTAMOL [Concomitant]
     Active Substance: ALBUTEROL
     Dosage: 4 SPRAY IN THE MORNING AND AT NIGHT
     Route: 065
  3. HYDROCHLOROTHIAZIDE. [Concomitant]
     Active Substance: HYDROCHLOROTHIAZIDE
     Dosage: 0.5 TAB, QD
     Route: 065
  4. SPIRONOLACTONE. [Concomitant]
     Active Substance: SPIRONOLACTONE
     Dosage: 1 TAB, QD
     Route: 065
  5. BECLOMETHASONE                     /00212602/ [Concomitant]
     Dosage: UNK (4 SPRAY IN A DAY)
     Route: 065
  6. NOVOMIX 30 FLEXPEN [Suspect]
     Active Substance: INSULIN ASPART
     Dosage: 24 IU, QD (18 IU IN THE MORNING AND 6 IU AT NIGHT)
     Route: 058
  7. CARVEDILOL. [Concomitant]
     Active Substance: CARVEDILOL
     Dosage: 0.5 TAB, BID
     Route: 065
  8. L-CARNITIN                         /00878601/ [Concomitant]
     Dosage: 2 TAB, QD
     Route: 065
  9. NOVOMIX 30 FLEXPEN [Suspect]
     Active Substance: INSULIN ASPART
     Dosage: 14 IU, QD (10 IU IN THE MORNING AND 4 IU AT NIGHT)
     Route: 058
     Dates: start: 20150522
  10. FORMOTEROL [Concomitant]
     Active Substance: FORMOTEROL
     Dosage: UNK (IN THE MORNING AND AT NIGHT)
     Route: 065
  11. LOSARTAN [Concomitant]
     Active Substance: LOSARTAN
     Dosage: 1 TAB, QD (1/2 TABLET IN THE MORNING AND AT NIGHT)
     Route: 065
  12. NOVOMIX 30 FLEXPEN [Suspect]
     Active Substance: INSULIN ASPART
     Indication: DIABETES MELLITUS
     Dosage: 16 IU, QD (12 IU IN MORNING AND 4 IU AT NIGHT)
     Route: 058
     Dates: start: 20150429
  13. DIGOXIN. [Concomitant]
     Active Substance: DIGOXIN
     Dosage: 1 TAB, QD
     Route: 065

REACTIONS (4)
  - Cardiac failure chronic [Not Recovered/Not Resolved]
  - Hypoglycaemia [Unknown]
  - Pulmonary oedema [Not Recovered/Not Resolved]
  - Respiratory disorder [Not Recovered/Not Resolved]
